FAERS Safety Report 19149125 (Version 1)
Quarter: 2021Q2

REPORT INFORMATION
  Report Type: Spontaneous
  Country: LY (occurrence: LY)
  Receive Date: 20210417
  Receipt Date: 20210417
  Transmission Date: 20210717
  Serious: Yes (Life-Threatening, Hospitalization, Other)
  Sender: FDA-Public Use
  Company Number: LY-LUPIN PHARMACEUTICALS INC.-2021-04750

PATIENT
  Age: 20 Month
  Sex: Male
  Weight: 14 kg

DRUGS (1)
  1. DIVALPROEX SODIUM. [Suspect]
     Active Substance: DIVALPROEX SODIUM
     Indication: PRODUCT USED FOR UNKNOWN INDICATION
     Dosage: 1500 MILLIGRAM
     Route: 048

REACTIONS (3)
  - Hyperammonaemic encephalopathy [Recovered/Resolved]
  - Accidental exposure to product [Unknown]
  - Toxicity to various agents [Unknown]
